FAERS Safety Report 6134097-8 (Version None)
Quarter: 2009Q1

REPORT INFORMATION
  Report Type: 
  Country: None (occurrence: None)
  Receive Date: 20090217
  Receipt Date: 20080118
  Transmission Date: 20090719
  Serious: No
  Sender: FDA-Public Use
  Company Number: AEUSA200800013

PATIENT
  Age: 50 Year
  Sex: Male

DRUGS (3)
  1. PROLASTIN [Suspect]
     Indication: ALPHA-1 ANTI-TRYPSIN DEFICIENCY
     Dosage: 4200 MG; QW; IV
     Route: 042
     Dates: start: 20050101, end: 20080117
  2. ALBUTEROL [Concomitant]
  3. XANAX [Concomitant]

REACTIONS (5)
  - ANXIETY [None]
  - NERVOUSNESS [None]
  - PYREXIA [None]
  - TACHYPNOEA [None]
  - TREMOR [None]
